FAERS Safety Report 5499073-7 (Version None)
Quarter: 2007Q4

REPORT INFORMATION
  Report Type: 
  Country: None (occurrence: None)
  Receive Date: 20071026
  Receipt Date: 20070820
  Transmission Date: 20080405
  Serious: Yes (Hospitalization)
  Sender: FDA-Public Use
  Company Number: A0653020A

PATIENT
  Age: 61 Year
  Sex: Female

DRUGS (5)
  1. ADVAIR DISKUS 100/50 [Suspect]
     Indication: CHRONIC OBSTRUCTIVE PULMONARY DISEASE
     Dosage: 1PUFF TWICE PER DAY
     Route: 055
     Dates: start: 20050101, end: 20070525
  2. SPIRIVA [Concomitant]
  3. LORAZEPAM [Concomitant]
  4. ALBUTEROL [Concomitant]
  5. ALBUTEROL [Concomitant]

REACTIONS (1)
  - PNEUMONIA [None]
